FAERS Safety Report 16814301 (Version 1)
Quarter: 2019Q3

REPORT INFORMATION
  Report Type: Spontaneous
  Country: US (occurrence: US)
  Receive Date: 20190917
  Receipt Date: 20190917
  Transmission Date: 20191005
  Serious: No
  Sender: FDA-Public Use
  Company Number: US-ALLERGAN-1926400US

PATIENT
  Age: 87 Year
  Sex: Female
  Weight: 72.57 kg

DRUGS (1)
  1. SUCRALFATE - BP [Suspect]
     Active Substance: SUCRALFATE
     Indication: ANTACID THERAPY
     Dosage: 1 G, TID BEFORE MEALS
     Route: 048

REACTIONS (3)
  - Off label use [Unknown]
  - Product taste abnormal [Unknown]
  - Product dose omission [Unknown]

NARRATIVE: CASE EVENT DATE: 20190621
